FAERS Safety Report 4630752-7 (Version None)
Quarter: 2005Q2

REPORT INFORMATION
  Report Type: 
  Country: None (occurrence: None)
  Receive Date: 20050408
  Receipt Date: 20050317
  Transmission Date: 20051028
  Serious: Yes (Disabling)
  Sender: FDA-Public Use
  Company Number: GB-ROCHE-399038

PATIENT
  Age: 61 Year
  Sex: Female
  Weight: 60 kg

DRUGS (1)
  1. LARIAM [Suspect]
     Indication: MALARIA PROPHYLAXIS
     Route: 048
     Dates: start: 20050214, end: 20050305

REACTIONS (6)
  - DERMATITIS EXFOLIATIVE [None]
  - DRY SKIN [None]
  - FEELING ABNORMAL [None]
  - SENSORY DISTURBANCE [None]
  - VISION BLURRED [None]
  - VOMITING [None]
